FAERS Safety Report 9571246 (Version 1)
Quarter: 2013Q3

REPORT INFORMATION
  Report Type: Spontaneous
  Country: US (occurrence: None)
  Receive Date: 20130927
  Receipt Date: 20130927
  Transmission Date: 20140515
  Serious: Yes (Life-Threatening, Hospitalization, Disabling)
  Sender: FDA-Public Use
  Company Number: None

PATIENT
  Age: 8 Month
  Sex: Female

DRUGS (1)
  1. BADGER BABY SUNSCREEN [Suspect]
     Dosage: 4 OUNCE

REACTIONS (3)
  - Product contamination microbial [None]
  - Urinary tract infection pseudomonal [None]
  - Product quality issue [None]
